FAERS Safety Report 10389112 (Version 1)
Quarter: 2014Q3

REPORT INFORMATION
  Report Type: Spontaneous
  Country: JP (occurrence: JP)
  Receive Date: 20140817
  Receipt Date: 20140817
  Transmission Date: 20150326
  Serious: Yes (Death, Other)
  Sender: FDA-Public Use
  Company Number: PHHY2006JP010351

PATIENT
  Age: 58 Year
  Sex: Male

DRUGS (5)
  1. GLIVEC [Suspect]
     Active Substance: IMATINIB MESYLATE
     Dosage: 400 MG, UNK
  2. IDARUBICIN [Concomitant]
     Active Substance: IDARUBICIN
     Dosage: 12 MG/M2, UNK
  3. GLIVEC [Suspect]
     Active Substance: IMATINIB MESYLATE
     Dosage: 600 MG, PER DAY
  4. GLIVEC [Suspect]
     Active Substance: IMATINIB MESYLATE
     Indication: ACUTE MYELOID LEUKAEMIA
     Dosage: 600 MG, DAILY
     Dates: start: 200509
  5. CYLOCIDE [Concomitant]
     Active Substance: CYTARABINE
     Dosage: 100 MG/M2, UNK

REACTIONS (5)
  - General physical health deterioration [Unknown]
  - Peripheral arterial occlusive disease [Unknown]
  - Death [Fatal]
  - Pseudomembranous colitis [Recovering/Resolving]
  - Haematemesis [Unknown]

NARRATIVE: CASE EVENT DATE: 20060924
